FAERS Safety Report 4462057-1 (Version None)
Quarter: 2004Q3

REPORT INFORMATION
  Report Type: 
  Country: None (occurrence: None)
  Receive Date: 20040924
  Receipt Date: 20040917
  Transmission Date: 20050211
  Serious: Yes (Death)
  Sender: FDA-Public Use
  Company Number: S04-USA-06151-01

PATIENT
  Age: 56 Year
  Sex: Male

DRUGS (9)
  1. CELEXA [Suspect]
     Dates: end: 20040806
  2. METHAMPHETAMINE HCL [Concomitant]
  3. COCAINE [Concomitant]
  4. XANAX [Concomitant]
  5. VALIUM [Concomitant]
  6. WELLBUTRIN [Concomitant]
  7. DIGOXIN [Concomitant]
  8. CHLORPHENIRAMINE MALEATE [Concomitant]
  9. VICODIN [Concomitant]

REACTIONS (1)
  - MYOCARDIAL INFARCTION [None]
